FAERS Safety Report 8495405-6 (Version None)
Quarter: 2012Q3

REPORT INFORMATION
  Report Type: 
  Country: None (occurrence: None)
  Receive Date: 20120709
  Receipt Date: 20120627
  Transmission Date: 20120928
  Serious: Yes (Hospitalization)
  Sender: FDA-Public Use
  Company Number: IT-CELGENEUS-083-CCAZA-12063766

PATIENT
  Sex: Female
  Weight: 60 kg

DRUGS (20)
  1. CIPROFLOXACIN HCL [Concomitant]
     Indication: PROPHYLAXIS
     Dosage: 500 MILLIGRAM
     Route: 048
     Dates: start: 20120615, end: 20120616
  2. CIPROFLOXACIN HCL [Concomitant]
     Dosage: 1000 MILLIGRAM
     Route: 048
     Dates: start: 20120617
  3. PREDNISONE [Concomitant]
     Dosage: 15 MILLIGRAM
     Route: 048
     Dates: start: 20120507, end: 20120513
  4. METHYLPREDNISOLONE [Concomitant]
     Dosage: 10 MILLIGRAM
     Route: 041
     Dates: start: 20120615, end: 20120616
  5. AZACITIDINE [Suspect]
     Dosage: 110 MILLIGRAM
     Route: 058
     Dates: start: 20120616, end: 20120621
  6. RANITIDINE [Concomitant]
     Indication: VOMITING
     Dosage: 50 MILLIGRAM
     Route: 041
     Dates: start: 20120615, end: 20120619
  7. TRANEXAMIC ACID [Concomitant]
     Indication: VOMITING
  8. METHYLPREDNISOLONE [Concomitant]
     Dosage: 20 MILLIGRAM
     Route: 041
     Dates: start: 20120617, end: 20120619
  9. ENALAPRIL MALEATE [Concomitant]
     Indication: HYPERTENSION
     Route: 048
     Dates: start: 20120616, end: 20120619
  10. PREDNISONE [Concomitant]
     Dosage: 10 MILLIGRAM
     Route: 048
     Dates: start: 20120326, end: 20120506
  11. TRANEXAMIC ACID [Concomitant]
     Indication: THROMBOCYTOPENIA
     Dosage: 1500 MILLIGRAM
     Route: 048
     Dates: start: 20120528, end: 20120606
  12. PREDNISONE [Concomitant]
     Dosage: 30 MILLIGRAM
     Route: 048
     Dates: start: 20120514, end: 20120527
  13. ALLOPURINOL [Concomitant]
     Dosage: 300 MILLIGRAM
     Route: 048
     Dates: start: 20120615, end: 20120619
  14. CIPROFLOXACIN HCL [Concomitant]
     Indication: EYE INFLAMMATION
     Route: 046
     Dates: start: 20120514, end: 20120614
  15. RANITIDINE [Concomitant]
     Indication: NAUSEA
     Dosage: 300 MILLIGRAM
     Route: 048
     Dates: start: 20120615, end: 20120619
  16. AZACITIDINE [Suspect]
     Dosage: 75 MILLIGRAM/SQ. METER
     Route: 058
     Dates: start: 20120517, end: 20120523
  17. PREDNISONE [Concomitant]
     Dosage: 37.5 MILLIGRAM
     Route: 048
     Dates: start: 20120528, end: 20120605
  18. PREDNISONE [Concomitant]
     Dosage: 25 MILLIGRAM
     Route: 048
     Dates: start: 20120606, end: 20120614
  19. PREDNISONE [Concomitant]
     Dosage: 37.5 MILLIGRAM
     Route: 048
     Dates: start: 20120620
  20. LANSOPRAZOLE [Concomitant]
     Indication: PROPHYLAXIS
     Dosage: 30 MILLIGRAM
     Route: 048
     Dates: start: 20120616

REACTIONS (1)
  - SYNCOPE [None]
